FAERS Safety Report 8242820-1 (Version None)
Quarter: 2012Q1

REPORT INFORMATION
  Report Type: 
  Country: None (occurrence: None)
  Receive Date: 20120329
  Receipt Date: 20120326
  Transmission Date: 20120608
  Serious: Yes (Death)
  Sender: FDA-Public Use
  Company Number: PHHY2012GB026045

PATIENT
  Age: 48 Year
  Sex: Female

DRUGS (11)
  1. LORAZEPAM [Suspect]
     Dosage: 2 MG, UNK
  2. HALOPERIDOL [Suspect]
     Dosage: 5 MG, UNK
     Route: 030
  3. LORAZEPAM [Suspect]
     Dosage: 2 MG, UNK
  4. HALOPERIDOL [Suspect]
     Indication: EMOTIONAL DISTRESS
     Dosage: 5 MG, UNK
     Dates: start: 20101122
  5. LORAZEPAM [Suspect]
     Dosage: 2 MG, UNK
  6. LORAZEPAM [Suspect]
     Dosage: 1 MG, UNK
  7. HALOPERIDOL [Suspect]
     Dosage: 2 MG, UNK
     Route: 030
  8. HALOPERIDOL [Suspect]
     Indication: AGITATION
     Dosage: 5 MG, UNK
     Dates: start: 20101117
  9. HALOPERIDOL [Suspect]
     Dosage: 5 MG, UNK
     Route: 030
  10. LORAZEPAM [Suspect]
     Indication: AGITATION
     Dosage: 1 MG, UNK
     Route: 030
     Dates: start: 20101117
  11. LORAZEPAM [Suspect]
     Indication: EMOTIONAL DISTRESS
     Dosage: 2 MG, UNK
     Dates: start: 20101122

REACTIONS (7)
  - UNRESPONSIVE TO STIMULI [None]
  - SOCIAL AVOIDANT BEHAVIOUR [None]
  - IMMOBILE [None]
  - PULMONARY EMBOLISM [None]
  - LOSS OF CONSCIOUSNESS [None]
  - DELUSIONAL PERCEPTION [None]
  - DEEP VEIN THROMBOSIS [None]
